FAERS Safety Report 25207850 (Version 1)
Quarter: 2025Q2

REPORT INFORMATION
  Report Type: Spontaneous
  Country: US (occurrence: US)
  Receive Date: 20250417
  Receipt Date: 20250417
  Transmission Date: 20250716
  Serious: No
  Sender: PFIZER
  Company Number: US-PFIZER INC-PV202500044834

PATIENT
  Age: 29 Year
  Sex: Female

DRUGS (1)
  1. SOLU-MEDROL [Suspect]
     Active Substance: METHYLPREDNISOLONE SODIUM SUCCINATE
     Indication: Optic neuritis
     Dates: start: 20220411

REACTIONS (2)
  - Off label use [Unknown]
  - Drug intolerance [Unknown]

NARRATIVE: CASE EVENT DATE: 20220411
